FAERS Safety Report 6547316-0 (Version None)
Quarter: 2010Q1

REPORT INFORMATION
  Report Type: 
  Country: None (occurrence: None)
  Receive Date: 20100122
  Receipt Date: 20100112
  Transmission Date: 20100710
  Serious: Yes (Death)
  Sender: FDA-Public Use
  Company Number: US-KINGPHARMUSA00001-K201000034

PATIENT
  Age: 49 Year
  Sex: Male
  Weight: 92.971 kg

DRUGS (6)
  1. SONATA [Suspect]
     Dosage: 10 MG, QHS
  2. MIRTAZAPINE [Suspect]
     Dosage: UNK
  3. PROCHLORPERAZINE [Suspect]
     Dosage: UNK
  4. ZOLPIDEM [Suspect]
     Dosage: UNK
  5. ALPRAZOLAM [Suspect]
     Dosage: UNK
  6. ALCOHOL [Suspect]
     Dosage: UNK

REACTIONS (3)
  - ASPHYXIA [None]
  - COMPLETED SUICIDE [None]
  - INTENTIONAL OVERDOSE [None]
